FAERS Safety Report 4763602-9 (Version None)
Quarter: 2005Q3

REPORT INFORMATION
  Report Type: 
  Country: None (occurrence: None)
  Receive Date: 20050908
  Receipt Date: 20050823
  Transmission Date: 20060218
  Serious: Yes (Hospitalization)
  Sender: FDA-Public Use
  Company Number: PHBS2005JP12429

PATIENT
  Age: 28 Year
  Sex: Female
  Weight: 48 kg

DRUGS (1)
  1. LAMISIL [Suspect]
     Indication: NAIL TINEA
     Dosage: 125 MG, QD
     Route: 048
     Dates: end: 20050814

REACTIONS (6)
  - ACUTE TONSILLITIS [None]
  - ALANINE AMINOTRANSFERASE INCREASED [None]
  - ASPARTATE AMINOTRANSFERASE INCREASED [None]
  - HEPATIC FUNCTION ABNORMAL [None]
  - PHARYNGEAL ERYTHEMA [None]
  - PHARYNGEAL OEDEMA [None]
